FAERS Safety Report 21933497 (Version 1)
Quarter: 2023Q1

REPORT INFORMATION
  Report Type: Spontaneous
  Country: US (occurrence: US)
  Receive Date: 20230201
  Receipt Date: 20230201
  Transmission Date: 20230417
  Serious: No
  Sender: FDA-Public Use
  Company Number: US-SANOFI-01462920

PATIENT
  Sex: Female

DRUGS (1)
  1. DUPIXENT [Suspect]
     Active Substance: DUPILUMAB
     Indication: Neurodermatitis
     Dosage: UNK UNK, 1X
     Dates: start: 20230117, end: 20230117

REACTIONS (5)
  - Neck pain [Unknown]
  - Pain [Unknown]
  - Back pain [Unknown]
  - Mobility decreased [Unknown]
  - Injection site bruising [Unknown]
